FAERS Safety Report 23435595 (Version 1)
Quarter: 2024Q1

REPORT INFORMATION
  Report Type: Spontaneous
  Country: JP (occurrence: JP)
  Receive Date: 20240124
  Receipt Date: 20240124
  Transmission Date: 20240409
  Serious: Yes (Other)
  Sender: FDA-Public Use
  Company Number: JP-002147023-NVSJ2024JP001147

PATIENT

DRUGS (2)
  1. VOLTAREN [Suspect]
     Active Substance: DICLOFENAC SODIUM
     Indication: Back pain
     Dosage: UNK UNK, QD (APPLIED BEFORE GOING TO BED EVERY DAY FOR 2 TO 3 YEARS)
  2. LOXOPROFEN SODIUM [Concomitant]
     Active Substance: LOXOPROFEN SODIUM
     Indication: Back pain
     Dosage: UNK (TOOK IT FOR ABOUT 1 WEEK OR 10 DAYS)
     Route: 048

REACTIONS (1)
  - Foreign body in throat [Unknown]

NARRATIVE: CASE EVENT DATE: 20230101
